FAERS Safety Report 22377287 (Version 2)
Quarter: 2023Q2

REPORT INFORMATION
  Report Type: Spontaneous
  Country: US (occurrence: US)
  Receive Date: 20230529
  Receipt Date: 20230626
  Transmission Date: 20230721
  Serious: Yes (Other)
  Sender: FDA-Public Use
  Company Number: US-BRISTOL-MYERS SQUIBB COMPANY-2023-074146

PATIENT
  Age: 89 Year
  Sex: Male
  Weight: 85.73 kg

DRUGS (3)
  1. ELIQUIS [Suspect]
     Active Substance: APIXABAN
     Indication: Cerebrovascular accident prophylaxis
  2. ELIQUIS [Suspect]
     Active Substance: APIXABAN
  3. LOSARTAN [Concomitant]
     Active Substance: LOSARTAN
     Indication: Haemorrhage
     Dates: end: 20230520

REACTIONS (2)
  - Hypertension [Unknown]
  - Aortic valve disease [Unknown]
